FAERS Safety Report 4804490-1 (Version None)
Quarter: 2005Q4

REPORT INFORMATION
  Report Type: 
  Country: None (occurrence: None)
  Receive Date: 20051017
  Receipt Date: 20051006
  Transmission Date: 20060501
  Serious: Yes (Death)
  Sender: FDA-Public Use
  Company Number: 2005139504

PATIENT
  Age: 51 Year
  Sex: Female

DRUGS (2)
  1. LYRICA [Suspect]
     Indication: NEURALGIA
     Dosage: 225 MG (75MG IN DAY 150MG IN NIGHT)
  2. AVANZA (MIRTAZAPINE) [Concomitant]

REACTIONS (1)
  - DEPRESSION [None]
